FAERS Safety Report 6804775-3 (Version None)
Quarter: 2010Q2

REPORT INFORMATION
  Report Type: 
  Country: None (occurrence: None)
  Receive Date: 20100628
  Receipt Date: 20070515
  Transmission Date: 20101027
  Serious: No
  Sender: FDA-Public Use
  Company Number: US-PFIZER INC-2007038951

PATIENT

DRUGS (1)
  1. GEODON [Suspect]

REACTIONS (6)
  - ANXIETY [None]
  - FATIGUE [None]
  - FLUSHING [None]
  - INSOMNIA [None]
  - TENSION [None]
  - WITHDRAWAL SYNDROME [None]
